FAERS Safety Report 4646673-X (Version None)
Quarter: 2005Q2

REPORT INFORMATION
  Report Type: 
  Country: None (occurrence: None)
  Receive Date: 20050422
  Receipt Date: 20050422
  Transmission Date: 20051028
  Serious: Yes (Hospitalization)
  Sender: FDA-Public Use
  Company Number: None

PATIENT
  Sex: Female
  Weight: 51.5 kg

DRUGS (2)
  1. IMATINIB MESYLATE 100MG CAPSULES, NOVARTIS [Suspect]
     Indication: GLIOBLASTOMA MULTIFORME
     Dosage: 600MG PO QD
     Route: 048
     Dates: start: 20050316, end: 20050323
  2. TEMOZOLOMIDE, SCHERING-PLOUGH [Suspect]
     Indication: GLIOBLASTOMA MULTIFORME
     Dosage: 300MG, PO QD
     Route: 048
     Dates: start: 20050319, end: 20050323

REACTIONS (11)
  - BACK PAIN [None]
  - BIOPSY BRAIN ABNORMAL [None]
  - BRAIN OEDEMA [None]
  - ENCEPHALITIS [None]
  - GLIOSIS [None]
  - INFECTION [None]
  - MALIGNANT NEOPLASM PROGRESSION [None]
  - MENINGITIS [None]
  - MENINGOENCEPHALITIS BACTERIAL [None]
  - NECROSIS [None]
  - STAPHYLOCOCCAL INFECTION [None]
